FAERS Safety Report 12270552 (Version 2)
Quarter: 2016Q2

REPORT INFORMATION
  Report Type: Report from Study
  Country: US (occurrence: US)
  Receive Date: 20160415
  Receipt Date: 20160516
  Transmission Date: 20160815
  Serious: Yes (Hospitalization, Other)
  Sender: FDA-Public Use
  Company Number: US-BEH-2016061031

PATIENT
  Age: 17 Year
  Sex: Female

DRUGS (4)
  1. CYTOGAM [Suspect]
     Active Substance: HUMAN CYTOMEGALOVIRUS IMMUNE GLOBULIN
     Indication: ANTIVIRAL PROPHYLAXIS
     Route: 042
     Dates: start: 20151221, end: 20160317
  2. CYTOGAM [Suspect]
     Active Substance: HUMAN CYTOMEGALOVIRUS IMMUNE GLOBULIN
     Indication: ANTIVIRAL PROPHYLAXIS
     Route: 042
     Dates: start: 20151221, end: 20160317
  3. PLACEBO (ALBUMIN 5% DILUTED WITH D5W) [Suspect]
     Active Substance: ALBUMIN HUMAN
     Indication: ANTIVIRAL PROPHYLAXIS
     Route: 042
     Dates: start: 20151221, end: 20160317
  4. PLACEBO (ALBUMIN 5% DILUTED WITH D5W) [Suspect]
     Active Substance: ALBUMIN HUMAN
     Indication: ANTIVIRAL PROPHYLAXIS
     Route: 042
     Dates: start: 20151221, end: 20160317

REACTIONS (7)
  - Blood pressure measurement [Unknown]
  - Thrombocytopenia [Unknown]
  - Exposure during pregnancy [Recovered/Resolved]
  - HELLP syndrome [Unknown]
  - Liver function test increased [Unknown]
  - Premature delivery [Recovered/Resolved]
  - Proteinuria [Unknown]

NARRATIVE: CASE EVENT DATE: 20151221
